FAERS Safety Report 21591582 (Version 1)
Quarter: 2022Q4

REPORT INFORMATION
  Report Type: Spontaneous
  Country: CN (occurrence: CN)
  Receive Date: 20221114
  Receipt Date: 20221114
  Transmission Date: 20230113
  Serious: Yes (Other)
  Sender: FDA-Public Use
  Company Number: None

PATIENT
  Age: 49 Year
  Sex: Female
  Weight: 47 kg

DRUGS (6)
  1. CYCLOPHOSPHAMIDE [Suspect]
     Active Substance: CYCLOPHOSPHAMIDE
     Indication: Breast cancer female
     Dosage: 0.7 G, QD, DILUTED WITH 500 ML OF SODIUM CHLORIDE
     Route: 041
     Dates: start: 20221010, end: 20221010
  2. SODIUM CHLORIDE [Suspect]
     Active Substance: SODIUM CHLORIDE
     Indication: Medication dilution
     Dosage: 500 ML, QD (USED TO DILUTE PIRARUBICIN HYDROCHLORIDE FOR INJECTION 60MG; ONCE FOR 2 HOURS)
     Route: 041
     Dates: start: 20221010, end: 20221010
  3. SODIUM CHLORIDE [Suspect]
     Active Substance: SODIUM CHLORIDE
     Dosage: 500 ML, QD (USED TO DILUTE FLUOROURACIL FOR INJECTION 700MG; ONCE MAINTAINED FOR 2 HOURS)
     Route: 041
     Dates: start: 20221010, end: 20221010
  4. FLUOROURACIL [Suspect]
     Active Substance: FLUOROURACIL
     Indication: Breast cancer female
     Dosage: 700 MG, QD (DILUTED WITH 0.9% SODIUM CHLORIDE INJECTION 500ML)
     Route: 041
     Dates: start: 20221010, end: 20221010
  5. PIRARUBICIN HYDROCHLORIDE [Suspect]
     Active Substance: PIRARUBICIN HYDROCHLORIDE
     Indication: Breast cancer female
     Dosage: 60 MG, QD (DILUTED WITH 0.9% SODIUM CHLORIDE INJECTION 500ML)
     Route: 041
     Dates: start: 20221010, end: 20221010
  6. SODIUM CHLORIDE [Concomitant]
     Active Substance: SODIUM CHLORIDE
     Indication: Breast cancer female
     Dosage: 500 ML, QD, USED TO DILUTE 0.7 G CYCLOPHOSPHAMIDE
     Route: 041
     Dates: start: 20221010, end: 20221010

REACTIONS (2)
  - White blood cell count decreased [Recovered/Resolved]
  - Neutrophil count decreased [Recovered/Resolved]

NARRATIVE: CASE EVENT DATE: 20221021
